FAERS Safety Report 8599770-0 (Version None)
Quarter: 2012Q3

REPORT INFORMATION
  Report Type: 
  Country: None (occurrence: None)
  Receive Date: 20120816
  Receipt Date: 20120809
  Transmission Date: 20120928
  Serious: Yes (Other)
  Sender: FDA-Public Use
  Company Number: US-ROCHE-1084286

PATIENT
  Sex: Male

DRUGS (6)
  1. ALVESCO [Concomitant]
  2. XOLAIR [Suspect]
     Indication: ASTHMA
     Route: 058
     Dates: start: 20120531
  3. XOLAIR [Suspect]
     Dates: start: 20120614
  4. VENTOLIN [Concomitant]
  5. FLUTICASONE PROPIONATE [Concomitant]
  6. SINGULAIR [Concomitant]

REACTIONS (13)
  - COUGH [None]
  - DYSPNOEA [None]
  - PENILE OEDEMA [None]
  - FUNGAL INFECTION [None]
  - PYREXIA [None]
  - PAIN [None]
  - INFLUENZA LIKE ILLNESS [None]
  - SYNCOPE [None]
  - LOSS OF CONSCIOUSNESS [None]
  - DYSPHONIA [None]
  - ABDOMINAL PAIN UPPER [None]
  - FATIGUE [None]
  - HEADACHE [None]
